FAERS Safety Report 23042327 (Version 1)
Quarter: 2023Q4

REPORT INFORMATION
  Report Type: Spontaneous
  Country: GB (occurrence: GB)
  Receive Date: 20231008
  Receipt Date: 20231008
  Transmission Date: 20240110
  Serious: Yes (Hospitalization, Other)
  Sender: FDA-Public Use
  Company Number: GB-STRIDES ARCOLAB LIMITED-2023SP015189

PATIENT
  Age: 8 Decade
  Sex: Female

DRUGS (2)
  1. TACROLIMUS [Suspect]
     Active Substance: TACROLIMUS
     Indication: Immunosuppressant drug therapy
     Dosage: UNK, (WITHHELD DURING THE FIRST 3DAYS OF  ADMISSION)
     Route: 065
  2. TACROLIMUS [Suspect]
     Active Substance: TACROLIMUS
     Indication: Liver transplant
     Dosage: UNK, (UNTIL TACROLIMUS LEVELS WERE CONFIRMED TO BE LOW,  AFTER WHICH IT WAS REINTRODUCED)
     Route: 065

REACTIONS (3)
  - Bickerstaff^s encephalitis [Recovered/Resolved]
  - Post transplant lymphoproliferative disorder [Recovered/Resolved]
  - Herpes zoster cutaneous disseminated [Unknown]
